FAERS Safety Report 26207942 (Version 1)
Quarter: 2025Q4

REPORT INFORMATION
  Report Type: Spontaneous
  Country: US (occurrence: US)
  Receive Date: 20251229
  Receipt Date: 20251229
  Transmission Date: 20260118
  Serious: Yes (Hospitalization)
  Sender: MERCK KGAA
  Company Number: US-Merck Healthcare KGaA-2025036574

PATIENT
  Age: 60 Year
  Sex: Female

DRUGS (3)
  1. MAVENCLAD [Suspect]
     Active Substance: CLADRIBINE
     Indication: Multiple sclerosis
     Dosage: FIRST CYCLE FIRST MONTH
     Dates: start: 20240701, end: 20240705
  2. MAVENCLAD [Suspect]
     Active Substance: CLADRIBINE
     Dosage: FIRST CYCLE SECOND MONTH
     Dates: start: 20240808, end: 20240812
  3. MAVENCLAD [Suspect]
     Active Substance: CLADRIBINE
     Dosage: FIRST CYCLE SECOND MONTH
     Dates: start: 20251211, end: 20251214

REACTIONS (3)
  - Skin ulcer [Not Recovered/Not Resolved]
  - Bacterial infection [Not Recovered/Not Resolved]
  - Infected skin ulcer [Unknown]

NARRATIVE: CASE EVENT DATE: 20250703
